FAERS Safety Report 17856563 (Version 1)
Quarter: 2020Q2

REPORT INFORMATION
  Report Type: Spontaneous
  Country: US (occurrence: US)
  Receive Date: 20200603
  Receipt Date: 20200603
  Transmission Date: 20200714
  Serious: Yes (Hospitalization)
  Sender: FDA-Public Use
  Company Number: US-BAYER-2020-097759

PATIENT
  Age: 50 Year
  Sex: Male

DRUGS (8)
  1. ASCORBIC ACID. [Concomitant]
     Active Substance: ASCORBIC ACID
  2. STIVARGA [Suspect]
     Active Substance: REGORAFENIB
     Dosage: UNK
  3. XARELTO [Concomitant]
     Active Substance: RIVAROXABAN
  4. NORCO [Concomitant]
     Active Substance: ACETAMINOPHEN\HYDROCODONE BITARTRATE
  5. ASPIRIN [ACETYLSALICYLIC ACID] [Concomitant]
     Active Substance: ASPIRIN
  6. IRON [Concomitant]
     Active Substance: IRON
  7. LONSURF [Suspect]
     Active Substance: TIPIRACIL HYDROCHLORIDE\TRIFLURIDINE
     Indication: COLON CANCER
     Dosage: 80 MG, BID
     Route: 048
     Dates: start: 2019, end: 2019
  8. LISINOPRIL. [Concomitant]
     Active Substance: LISINOPRIL

REACTIONS (3)
  - Intestinal obstruction [Recovered/Resolved]
  - Product dose omission [None]
  - Vomiting [Recovered/Resolved]

NARRATIVE: CASE EVENT DATE: 20200513
